FAERS Safety Report 13085493 (Version 1)
Quarter: 2017Q1

REPORT INFORMATION
  Report Type: Spontaneous
  Country: US (occurrence: US)
  Receive Date: 20170103
  Receipt Date: 20170103
  Transmission Date: 20170428
  Serious: Yes (Other)
  Sender: FDA-Public Use
  Company Number: None

PATIENT
  Age: 43 Year
  Sex: Female
  Weight: 94.5 kg

DRUGS (1)
  1. SILACE [Suspect]
     Active Substance: DOCUSATE SODIUM
     Dosage: ?          QUANTITY:1 1;?
     Route: 048
     Dates: start: 20161219

REACTIONS (4)
  - Nausea [None]
  - Abdominal pain upper [None]
  - Product label issue [None]
  - Product use issue [None]

NARRATIVE: CASE EVENT DATE: 20170102
